FAERS Safety Report 6726362-8 (Version None)
Quarter: 2010Q2

REPORT INFORMATION
  Report Type: 
  Country: None (occurrence: None)
  Receive Date: 20100514
  Receipt Date: 20100507
  Transmission Date: 20101027
  Serious: Yes (Death)
  Sender: FDA-Public Use
  Company Number: A0858699A

PATIENT
  Sex: Male

DRUGS (18)
  1. ZOFRAN [Suspect]
     Indication: PROPHYLAXIS OF NAUSEA AND VOMITING
     Dosage: 8MG VARIABLE DOSE
     Route: 048
     Dates: start: 20100302
  2. DEMECLOCYCLINE HYDROCHLORIDE [Concomitant]
  3. DURAGESIC-100 [Concomitant]
  4. DIFLUCAN [Concomitant]
  5. BACLOFEN [Concomitant]
  6. EMEND [Concomitant]
  7. ALPRAZOLAM [Concomitant]
  8. ATENOLOL [Concomitant]
  9. COMPAZINE [Concomitant]
  10. EFFEXOR [Concomitant]
  11. AVINZA [Concomitant]
  12. ALBUTEROL [Concomitant]
  13. NUCYNTA [Concomitant]
  14. CISPLATIN [Concomitant]
  15. ETOPOSIDE [Concomitant]
  16. NEULASTA [Concomitant]
  17. DECADRON [Concomitant]
  18. ALOXI [Concomitant]

REACTIONS (1)
  - DEATH [None]
